FAERS Safety Report 8042945-X (Version None)
Quarter: 2012Q1

REPORT INFORMATION
  Report Type: 
  Country: None (occurrence: None)
  Receive Date: 20120112
  Receipt Date: 20120111
  Transmission Date: 20120608
  Serious: Yes (Disabling, Other)
  Sender: FDA-Public Use
  Company Number: US-PFIZER INC-2012008755

PATIENT
  Age: 77 Year
  Sex: Male

DRUGS (1)
  1. LIPITOR [Suspect]
     Dosage: UNK

REACTIONS (4)
  - CEREBROVASCULAR ACCIDENT [None]
  - GAIT DISTURBANCE [None]
  - CARDIAC DISORDER [None]
  - ILL-DEFINED DISORDER [None]
